FAERS Safety Report 11394712 (Version 1)
Quarter: 2015Q3

REPORT INFORMATION
  Report Type: Report from Study
  Country: US (occurrence: US)
  Receive Date: 20150819
  Receipt Date: 20150819
  Transmission Date: 20151125
  Serious: Yes (Hospitalization)
  Sender: FDA-Public Use
  Company Number: US-ABBVIE-15P-163-1437331-00

PATIENT
  Sex: Female

DRUGS (3)
  1. VIEKIRA PAK [Suspect]
     Active Substance: DASABUVIR\OMBITASVIR\PARITAPREVIR\RITONAVIR
     Dosage: 2 PINK IN AM AND 1 BEIGE TWICE DAILY
     Route: 048
     Dates: start: 20150803
  2. RIBAVIRIN. [Suspect]
     Active Substance: RIBAVIRIN
     Indication: HEPATITIS C
     Route: 048
  3. VIEKIRA PAK [Suspect]
     Active Substance: DASABUVIR\OMBITASVIR\PARITAPREVIR\RITONAVIR
     Indication: HEPATITIS C
     Dosage: 2 PINK IN AM AND 1 BEIGE TWICE DAILY
     Route: 048
     Dates: start: 201506, end: 20150731

REACTIONS (20)
  - Wound haemorrhage [Recovering/Resolving]
  - Depression [Recovering/Resolving]
  - Pain [Recovering/Resolving]
  - Nausea [Unknown]
  - Body temperature decreased [Unknown]
  - Vomiting [Recovering/Resolving]
  - Mood altered [Recovering/Resolving]
  - Pruritus [Recovering/Resolving]
  - Fatigue [Unknown]
  - Insomnia [Recovering/Resolving]
  - Palpitations [Unknown]
  - Crying [Recovering/Resolving]
  - Diarrhoea [Recovering/Resolving]
  - Chills [Unknown]
  - Hyperhidrosis [Unknown]
  - Dyspnoea [Unknown]
  - Headache [Recovering/Resolving]
  - Asthenia [Recovering/Resolving]
  - Rash [Recovering/Resolving]
  - Blister [Recovering/Resolving]
